FAERS Safety Report 6166412-3 (Version None)
Quarter: 2009Q2

REPORT INFORMATION
  Report Type: 
  Country: None (occurrence: None)
  Receive Date: 20090424
  Receipt Date: 20090420
  Transmission Date: 20091009
  Serious: Yes (Other)
  Sender: FDA-Public Use
  Company Number: US-PURDUE-USA_2009_0037903

PATIENT
  Age: 66 Year
  Sex: Female
  Weight: 86 kg

DRUGS (6)
  1. SENOKOT [Suspect]
     Indication: CONSTIPATION
     Dosage: 3 TABLET, HS
     Dates: start: 19620101, end: 20090419
  2. PREMARIN                           /01218301/ [Concomitant]
     Indication: HORMONE THERAPY
     Dosage: .625 MG, DAILY
     Dates: start: 19750101
  3. PROZAC                             /00724402/ [Concomitant]
     Indication: DEPRESSION
     Dosage: 20 MG, DAILY
     Dates: start: 20070819
  4. CARDIZEM [Concomitant]
     Indication: HYPERTENSION
     Dosage: 120 MG, DAILY
  5. LASIX [Concomitant]
     Indication: JOINT SWELLING
     Dosage: 40 MG, DAILY
  6. POTASSIUM CHLORIDE [Concomitant]
     Indication: SUPPLEMENTATION THERAPY
     Dosage: 1 TABLET, DAILY

REACTIONS (4)
  - GASTROINTESTINAL DISORDER [None]
  - HYPOPHAGIA [None]
  - MALAISE [None]
  - WEIGHT DECREASED [None]
